FAERS Safety Report 9852865 (Version 2)
Quarter: 2014Q1

REPORT INFORMATION
  Report Type: Spontaneous
  Country: US (occurrence: US)
  Receive Date: 20140129
  Receipt Date: 20140212
  Transmission Date: 20141002
  Serious: Yes (Death)
  Sender: FDA-Public Use
  Company Number: US-PFIZER INC-2014024937

PATIENT
  Age: 80 Year
  Sex: Male

DRUGS (7)
  1. SUTENT [Suspect]
     Dosage: 25 MG, DAILY
     Route: 048
     Dates: start: 20131207
  2. FLOMAX [Concomitant]
     Dosage: UNK
  3. AMLODIPINE BESYLATE [Concomitant]
     Dosage: UNK
  4. LORAZEPAM [Concomitant]
     Dosage: UNK
  5. VITAMIN D3 [Concomitant]
     Dosage: UNK
  6. IRON [Concomitant]
     Dosage: UNK
  7. HYDROCODONE [Concomitant]
     Dosage: UNK

REACTIONS (1)
  - Death [Fatal]
